FAERS Safety Report 20868018 (Version 3)
Quarter: 2022Q2

REPORT INFORMATION
  Report Type: Spontaneous
  Country: CA (occurrence: CA)
  Receive Date: 20220524
  Receipt Date: 20220620
  Transmission Date: 20220721
  Serious: Yes (Other)
  Sender: FDA-Public Use
  Company Number: CA-PFIZER INC-202200742139

PATIENT
  Age: 25 Year
  Sex: Male

DRUGS (6)
  1. METHOTREXATE SODIUM [Suspect]
     Active Substance: METHOTREXATE SODIUM
     Indication: Granulomatosis with polyangiitis
     Dosage: 20 MG, WEEKLY
     Route: 048
     Dates: start: 202112
  2. METHOTREXATE SODIUM [Suspect]
     Active Substance: METHOTREXATE SODIUM
     Indication: Polyarteritis nodosa
  3. PREDNISONE ACETATE [Concomitant]
     Active Substance: PREDNISONE ACETATE
     Dosage: 50 MG, DAILY TAPER
     Route: 048
  4. PREDNISONE ACETATE [Concomitant]
     Active Substance: PREDNISONE ACETATE
     Dosage: BACK TO 50 MG, DAILY
     Route: 048
  5. PREDNISONE ACETATE [Concomitant]
     Active Substance: PREDNISONE ACETATE
     Dosage: 15 MG, 1X/DAY
     Route: 065
  6. PREDNISONE ACETATE [Concomitant]
     Active Substance: PREDNISONE ACETATE
     Dosage: 75 MG, 1X/DAY
     Route: 065
     Dates: start: 2022

REACTIONS (11)
  - Haematuria [Unknown]
  - Polyarthritis [Unknown]
  - Haematochezia [Unknown]
  - Treatment failure [Unknown]
  - Off label use [Unknown]
  - Orchitis [Unknown]
  - Condition aggravated [Unknown]
  - Colitis [Unknown]
  - Diarrhoea [Unknown]
  - Pyrexia [Unknown]
  - Vasculitis [Unknown]

NARRATIVE: CASE EVENT DATE: 20220501
